FAERS Safety Report 9079964 (Version 1)
Quarter: 2013Q1

REPORT INFORMATION
  Report Type: Report from Study
  Country: US (occurrence: US)
  Receive Date: 20130130
  Receipt Date: 20130130
  Transmission Date: 20140127
  Serious: No
  Sender: FDA-Public Use
  Company Number: US-ABBOTT-12P-163-0958381-00

PATIENT
  Age: 58 Year
  Sex: Female

DRUGS (5)
  1. HUMIRA 40 MG/0.8 ML PEN [Suspect]
     Indication: RHEUMATOID ARTHRITIS
     Dates: start: 2003
  2. HUMIRA 40 MG/0.8 ML PEN [Suspect]
     Dates: start: 20120606
  3. VICODIN [Concomitant]
     Indication: PAIN
     Dosage: 5/500MG
  4. GENERIC PRILOSEC [Concomitant]
     Indication: ILL-DEFINED DISORDER
  5. GENERIC PRILOSEC [Concomitant]
     Indication: GASTRIC DISORDER

REACTIONS (6)
  - Drug ineffective [Not Recovered/Not Resolved]
  - Rheumatoid arthritis [Not Recovered/Not Resolved]
  - Injection site erythema [Recovered/Resolved]
  - Drug administered at inappropriate site [Unknown]
  - Injection site urticaria [Recovered/Resolved]
  - Dysphonia [Unknown]
